FAERS Safety Report 7118563-4 (Version None)
Quarter: 2010Q4

REPORT INFORMATION
  Report Type: 
  Country: None (occurrence: None)
  Receive Date: 20101123
  Receipt Date: 20101112
  Transmission Date: 20110411
  Serious: Yes (Hospitalization)
  Sender: FDA-Public Use
  Company Number: US-BAYER-201023653BCC

PATIENT
  Age: 59 Year
  Sex: Female
  Weight: 73 kg

DRUGS (10)
  1. MILK OF MAGNESIA TAB [Suspect]
     Indication: RECTAL FISSURE
     Dosage: 2 TEASPOONS
     Route: 048
     Dates: start: 20100901
  2. ESTRACE [Concomitant]
  3. JANUMET [Concomitant]
  4. AMARYL [Concomitant]
  5. LANTUS [Concomitant]
  6. LISINOPRIL [Concomitant]
  7. COZAAR [Concomitant]
  8. LOVASTATIN [Concomitant]
  9. ASPIRIN [Concomitant]
  10. COUMADIN [Concomitant]

REACTIONS (2)
  - ATRIAL FIBRILLATION [None]
  - HEART RATE DECREASED [None]
